FAERS Safety Report 18301344 (Version 1)
Quarter: 2020Q3

REPORT INFORMATION
  Report Type: Spontaneous
  Country: US (occurrence: US)
  Receive Date: 20200923
  Receipt Date: 20200923
  Transmission Date: 20201103
  Serious: Yes (Hospitalization)
  Sender: FDA-Public Use
  Company Number: None

PATIENT
  Age: 70 Year
  Sex: Male

DRUGS (1)
  1. APIXABAN (APIXABAN 5MG TAB) [Suspect]
     Active Substance: APIXABAN
     Indication: PULMONARY EMBOLISM
     Dosage: ?          OTHER DOSE:1 TAB;?
     Route: 048
     Dates: start: 20200201

REACTIONS (5)
  - Dyspnoea [None]
  - Fatigue [None]
  - Therapy interrupted [None]
  - Gastrointestinal haemorrhage [None]
  - Melaena [None]

NARRATIVE: CASE EVENT DATE: 20200331
